FAERS Safety Report 10575729 (Version 1)
Quarter: 2014Q4

REPORT INFORMATION
  Report Type: Spontaneous
  Country: US (occurrence: US)
  Receive Date: 20141111
  Receipt Date: 20141111
  Transmission Date: 20150529
  Serious: No
  Sender: FDA-Public Use
  Company Number: US-PFIZER INC-2014305431

PATIENT
  Sex: Male

DRUGS (1)
  1. LYRICA [Suspect]
     Active Substance: PREGABALIN
     Indication: NEUROPATHY PERIPHERAL
     Dosage: 150 MG, EVERY 5 TO 6 HOURS ALL DAY
     Dates: start: 2010

REACTIONS (3)
  - Amnesia [Unknown]
  - Drug ineffective [Unknown]
  - Blood sodium decreased [Unknown]
